FAERS Safety Report 17556478 (Version 1)
Quarter: 2020Q1

REPORT INFORMATION
  Report Type: Spontaneous
  Country: FR (occurrence: FR)
  Receive Date: 20200318
  Receipt Date: 20200318
  Transmission Date: 20200409
  Serious: Yes (Other)
  Sender: FDA-Public Use
  Company Number: FR-MYLANLABS-2020M1027365

PATIENT
  Age: 82 Year
  Sex: Male
  Weight: 72 kg

DRUGS (1)
  1. VANCOMYCIN MYLAN [Suspect]
     Active Substance: VANCOMYCIN
     Indication: ADMINISTRATION SITE INFECTION
     Dosage: 2 GRAM, QD
     Route: 041
     Dates: start: 20200120, end: 20200203

REACTIONS (2)
  - Drug level increased [Recovering/Resolving]
  - Blood creatinine increased [Not Recovered/Not Resolved]

NARRATIVE: CASE EVENT DATE: 20200123
